FAERS Safety Report 4928714-5 (Version None)
Quarter: 2006Q1

REPORT INFORMATION
  Report Type: 
  Country: None (occurrence: None)
  Receive Date: 20060227
  Receipt Date: 20060227
  Transmission Date: 20060701
  Serious: Yes (Life-Threatening)
  Sender: FDA-Public Use
  Company Number: None

PATIENT
  Age: 26 Year
  Sex: Male

DRUGS (8)
  1. ACETADOTE [Suspect]
     Indication: OVERDOSE
     Dosage: 500 MG ONCE IV DRIP
     Route: 041
     Dates: start: 20051112, end: 20051112
  2. POTASSIUM PHOSPHATES [Concomitant]
  3. LACTULOSE [Concomitant]
  4. PROMETHAZINE [Concomitant]
  5. PANTOPRAZOLE [Concomitant]
  6. PHYTONADIONE [Concomitant]
  7. ... [Concomitant]
  8. ... [Concomitant]

REACTIONS (8)
  - BRONCHOSPASM [None]
  - DEPRESSED LEVEL OF CONSCIOUSNESS [None]
  - DRUG HYPERSENSITIVITY [None]
  - HEPATIC FAILURE [None]
  - INFUSION RELATED REACTION [None]
  - RENAL FAILURE [None]
  - URTICARIA [None]
  - WHEEZING [None]
